FAERS Safety Report 12179050 (Version 1)
Quarter: 2016Q1

REPORT INFORMATION
  Report Type: Spontaneous
  Country: US (occurrence: None)
  Receive Date: 20160314
  Receipt Date: 20160314
  Transmission Date: 20160526
  Serious: Yes (Other)
  Sender: FDA-Public Use
  Company Number: None

PATIENT
  Age: 34 Year
  Sex: Female
  Weight: 70.31 kg

DRUGS (7)
  1. FINGLOLIMOD [Suspect]
     Active Substance: FINGOLIMOD
     Indication: MULTIPLE SCLEROSIS
     Dosage: 1 PILL DAILY ONCE DAILY TAKEN BY MOUTH
     Route: 048
  2. BACLOPHEN [Concomitant]
  3. CYMBALTA [Concomitant]
     Active Substance: DULOXETINE HYDROCHLORIDE
  4. MULTI VITAMIN [Concomitant]
     Active Substance: VITAMINS
  5. NEURONTIN [Concomitant]
     Active Substance: GABAPENTIN
  6. MODAFINIL. [Concomitant]
     Active Substance: MODAFINIL
  7. VITAMIN D [Concomitant]
     Active Substance: CHOLECALCIFEROL

REACTIONS (1)
  - JC virus test positive [None]

NARRATIVE: CASE EVENT DATE: 20160203
